FAERS Safety Report 7985722-8 (Version None)
Quarter: 2011Q4

REPORT INFORMATION
  Report Type: 
  Country: None (occurrence: None)
  Receive Date: 20111216
  Receipt Date: 20111216
  Transmission Date: 20120403
  Serious: Yes (Other)
  Sender: FDA-Public Use
  Company Number: None

PATIENT
  Age: 63 Year
  Sex: Female
  Weight: 72.574 kg

DRUGS (1)
  1. ENBREL [Suspect]
     Indication: ARTHRITIS
     Dosage: 50MG
     Route: 058
     Dates: start: 20010201, end: 20111215

REACTIONS (4)
  - ABASIA [None]
  - PSORIASIS [None]
  - PRURITUS [None]
  - PAIN [None]
